FAERS Safety Report 7477196-0 (Version None)
Quarter: 2011Q2

REPORT INFORMATION
  Report Type: 
  Country: None (occurrence: None)
  Receive Date: 20110512
  Receipt Date: 20110307
  Transmission Date: 20111010
  Serious: No
  Sender: FDA-Public Use
  Company Number: US-NOVEN-11US001933

PATIENT
  Sex: Male
  Weight: 23.129 kg

DRUGS (2)
  1. DAYTRANA [Suspect]
     Dosage: UNK
     Route: 062
     Dates: start: 20100701, end: 20110212
  2. DAYTRANA [Suspect]
     Indication: ATTENTION DEFICIT/HYPERACTIVITY DISORDER
     Dosage: 15 MG, QD 9 HRS
     Route: 062
     Dates: start: 20110212

REACTIONS (4)
  - ABNORMAL BEHAVIOUR [None]
  - INCORRECT DOSE ADMINISTERED [None]
  - DRUG INEFFECTIVE [None]
  - PRODUCT QUALITY ISSUE [None]
